FAERS Safety Report 9539829 (Version 1)
Quarter: 2013Q2

REPORT INFORMATION
  Report Type: Spontaneous
  Country: US (occurrence: None)
  Receive Date: 20130521
  Receipt Date: 20130521
  Transmission Date: 20140414
  Serious: No
  Sender: FDA-Public Use
  Company Number: 1000042587

PATIENT
  Age: 73 Year
  Sex: Female

DRUGS (6)
  1. TUDORZA PRESSAIR (ACLIDINIUM BROMIDE) (400 MICROGRAM, POWDER) [Suspect]
     Indication: CHRONIC OBSTRUCTIVE PULMONARY DISEASE
     Dosage: 800MCG (400 MCG, 2 IN 1 D), RESPIRATORY (INHALATION)?
     Route: 055
     Dates: start: 20130204, end: 20130207
  2. NORVASC (AMLODIPINE BESILATE) (AMLODIPINE BESILATE)? [Concomitant]
  3. SINGULAIR (MONTELUKAST SODIUM) (MONTELUKAST SODIUM)? [Concomitant]
  4. SYMBICORT (BUDESONIDE W/FORMOTEROL FUMARATE) (BUDESONIDE W/FORMOTEROL FUMARATE)? [Concomitant]
  5. THEOPHYLLINE (THEOPHYLLINE) (THEOPHYLLINE) [Concomitant]
  6. PULMICORT (BUDESONIDE) (BUDESONIDE) [Concomitant]

REACTIONS (1)
  - Muscle spasms [None]
